FAERS Safety Report 6490626-6 (Version None)
Quarter: 2009Q4

REPORT INFORMATION
  Report Type: 
  Country: None (occurrence: None)
  Receive Date: 20091211
  Receipt Date: 20091203
  Transmission Date: 20100525
  Serious: Yes (Hospitalization)
  Sender: FDA-Public Use
  Company Number: A0833187A

PATIENT
  Age: 69 Year
  Sex: Female

DRUGS (6)
  1. LAMICTAL [Suspect]
     Indication: BIPOLAR DISORDER
     Dosage: 50MG PER DAY
     Route: 048
     Dates: start: 20091120
  2. WELLBUTRIN [Suspect]
     Indication: DEPRESSION
     Route: 048
     Dates: start: 20091001
  3. HYZAAR [Concomitant]
  4. PROZAC [Concomitant]
  5. TEKTURNA [Concomitant]
  6. LYRICA [Concomitant]

REACTIONS (2)
  - GRAND MAL CONVULSION [None]
  - URINARY RETENTION [None]
